FAERS Safety Report 9800078 (Version 1)
Quarter: 2014Q1

REPORT INFORMATION
  Report Type: Spontaneous
  Country: US (occurrence: US)
  Receive Date: 20140106
  Receipt Date: 20140106
  Transmission Date: 20141002
  Serious: Yes (Hospitalization)
  Sender: FDA-Public Use
  Company Number: US-GILEAD-2010-0032160

PATIENT
  Age: 73 Year
  Sex: Female

DRUGS (8)
  1. LETAIRIS [Suspect]
     Indication: PULMONARY ARTERIAL HYPERTENSION
     Route: 048
     Dates: start: 20100828, end: 20100830
  2. PLAVIX [Concomitant]
  3. ASPIRIN [Concomitant]
  4. HUMULIN [Concomitant]
  5. FAMOTIDINE [Concomitant]
  6. SENSIPAR [Concomitant]
  7. SIMVASTATIN [Concomitant]
  8. NADOLOL [Concomitant]

REACTIONS (1)
  - Dyspnoea [Recovered/Resolved]
